FAERS Safety Report 17509012 (Version 1)
Quarter: 2020Q1

REPORT INFORMATION
  Report Type: Spontaneous
  Country: RU (occurrence: RU)
  Receive Date: 20200306
  Receipt Date: 20200306
  Transmission Date: 20200409
  Serious: Yes (Other)
  Sender: FDA-Public Use
  Company Number: RU-AMGEN-RUSSP2020036035

PATIENT
  Sex: Male

DRUGS (7)
  1. ABIRATERONE. [Concomitant]
     Active Substance: ABIRATERONE ACETATE
     Indication: METASTASES TO LYMPH NODES
     Dosage: 1000 MILLIGRAM, QD
     Dates: start: 201612
  2. LUTEINIZING HORMONE-RELEASING HORMONE [Concomitant]
     Active Substance: GONADORELIN
     Dosage: UNK
     Dates: start: 201612
  3. XGEVA [Suspect]
     Active Substance: DENOSUMAB
     Indication: METASTASES TO LYMPH NODES
     Dosage: UNK
     Route: 065
  4. VITAMIN D3 [Concomitant]
     Active Substance: CHOLECALCIFEROL
     Dosage: UNK
     Dates: start: 201612
  5. ENZALUTAMIDE [Concomitant]
     Active Substance: ENZALUTAMIDE
     Dosage: UNK
     Route: 065
     Dates: start: 201708, end: 201904
  6. PREDNISONE. [Concomitant]
     Active Substance: PREDNISONE
     Indication: METASTASES TO LYMPH NODES
     Dosage: 10 MILLIGRAM, QD
     Dates: start: 201612
  7. CALCIUM [Concomitant]
     Active Substance: CALCIUM
     Dosage: UNK
     Dates: start: 201612

REACTIONS (1)
  - Prostate cancer metastatic [Recovering/Resolving]

NARRATIVE: CASE EVENT DATE: 201707
